FAERS Safety Report 8421040-1 (Version None)
Quarter: 2012Q2

REPORT INFORMATION
  Report Type: 
  Country: None (occurrence: None)
  Receive Date: 20120608
  Receipt Date: 20120601
  Transmission Date: 20120825
  Serious: Yes (Hospitalization)
  Sender: FDA-Public Use
  Company Number: US-BAYER-2012-017429

PATIENT
  Age: 44 Year
  Sex: Female
  Weight: 86 kg

DRUGS (6)
  1. YAZ [Suspect]
     Indication: CONTRACEPTION
     Dosage: UNK
     Route: 048
     Dates: start: 20070701, end: 20090401
  2. IMITREX [Concomitant]
     Indication: MIGRAINE
     Dosage: 50-100MG
     Dates: start: 20000101
  3. IOPHEN-C NR [Concomitant]
  4. ASCORBIC ACID [Concomitant]
  5. AMOXICILLIN AND CLAVULANATE POTASSIUM [Concomitant]
     Dosage: 875 MG, UNK
  6. IBUPROFEN [Concomitant]

REACTIONS (6)
  - DEEP VEIN THROMBOSIS [None]
  - EMOTIONAL DISTRESS [None]
  - MENTAL DISORDER [None]
  - INJURY [None]
  - PAIN [None]
  - PULMONARY EMBOLISM [None]
